FAERS Safety Report 22241206 (Version 1)
Quarter: 2023Q2

REPORT INFORMATION
  Report Type: Report from Study
  Country: US (occurrence: US)
  Receive Date: 20230421
  Receipt Date: 20230421
  Transmission Date: 20230721
  Serious: Yes (Other)
  Sender: FDA-Public Use
  Company Number: US-002147023-NVSC2023US086711

PATIENT

DRUGS (1)
  1. ENTRESTO [Suspect]
     Active Substance: SACUBITRIL\VALSARTAN
     Indication: Foetal exposure during pregnancy
     Dosage: UNK (PATERNAL EXPOSURE DURING PREGNANCY, UNKNOWN DOSE)
     Route: 050

REACTIONS (2)
  - Premature baby [Unknown]
  - Exposure via father [Unknown]
